FAERS Safety Report 6544168-X (Version None)
Quarter: 2010Q1

REPORT INFORMATION
  Report Type: 
  Country: None (occurrence: None)
  Receive Date: 20100120
  Receipt Date: 20091007
  Transmission Date: 20100710
  Serious: No
  Sender: FDA-Public Use
  Company Number: US-ALLERGAN-0916696US

PATIENT
  Age: 67 Year
  Sex: Female

DRUGS (3)
  1. ACULAR LS [Suspect]
     Indication: POSTOPERATIVE CARE
     Dosage: UNK
     Dates: start: 20090805
  2. PRED FORTE [Suspect]
     Indication: POSTOPERATIVE CARE
     Dosage: UNK
     Dates: start: 20090805
  3. ZYMAR [Suspect]
     Indication: POSTOPERATIVE CARE
     Dosage: UNK
     Dates: start: 20090805

REACTIONS (1)
  - DYSGEUSIA [None]
